FAERS Safety Report 19705911 (Version 3)
Quarter: 2021Q4

REPORT INFORMATION
  Report Type: Report from Study
  Country: AT (occurrence: AT)
  Receive Date: 20210817
  Receipt Date: 20211028
  Transmission Date: 20220303
  Serious: Yes (Hospitalization, Other)
  Sender: FDA-Public Use
  Company Number: AT-CELLTRION INC.-2019AT028790

PATIENT

DRUGS (149)
  1. TRASTUZUMAB [Suspect]
     Active Substance: TRASTUZUMAB
     Indication: HER2 positive breast cancer
     Dosage: 600 MG, EVERY 3 WEEK; MOST RECENT DOSE PRIOR TO THE EVENT: 11 OCT 2019
     Route: 042
     Dates: start: 20180328, end: 20180328
  2. TRASTUZUMAB [Suspect]
     Active Substance: TRASTUZUMAB
     Indication: Breast cancer
     Dosage: 600 MG, EVERY 3 WEEK; MOST RECENT DOSE PRIOR TO THE EVENT: 26 JUN 2018
     Route: 041
     Dates: start: 20180328, end: 20180328
  3. TRASTUZUMAB [Suspect]
     Active Substance: TRASTUZUMAB
     Dosage: 600 MG, EVERY 3 WEEK; MOST RECENT DOSE PRIOR TO THE EVENT: 11 OCT 2019
     Route: 042
     Dates: start: 20180328, end: 20180328
  4. TRASTUZUMAB [Suspect]
     Active Substance: TRASTUZUMAB
     Dosage: 600 MG, EVERY 3 WEEK; MOST RECENT DOSE: 11/OCT/2019
     Route: 042
     Dates: start: 20180328
  5. TRASTUZUMAB [Suspect]
     Active Substance: TRASTUZUMAB
     Dosage: 600 MG, EVERY 3 WEEKS. MOST RECENT DOSE PRIOR TO THE EVENT: 19/FEB2020
     Route: 042
     Dates: start: 20180328, end: 20180328
  6. TRASTUZUMAB [Suspect]
     Active Substance: TRASTUZUMAB
     Dosage: 600 MG, EVERY 3 WEEKS. MOST RECENT DOSE PRIOR TO THE EVENT: 19/FEB2020
     Route: 042
     Dates: start: 20180328
  7. TRASTUZUMAB [Suspect]
     Active Substance: TRASTUZUMAB
     Dosage: 600 MG, EVERY 3 WEEKS
     Route: 042
     Dates: start: 20180328, end: 20180328
  8. TRASTUZUMAB [Suspect]
     Active Substance: TRASTUZUMAB
     Dosage: 408 MG EVERY 3 WEEKS
     Route: 042
     Dates: start: 20180423, end: 20180423
  9. TRASTUZUMAB [Suspect]
     Active Substance: TRASTUZUMAB
     Dosage: 408 MG EVERY 3 WEEKS
     Route: 042
     Dates: start: 20180423
  10. TRASTUZUMAB [Suspect]
     Active Substance: TRASTUZUMAB
     Dosage: 384 MG EVERY 3 WEEKS
     Route: 042
     Dates: start: 20180515, end: 20180515
  11. TRASTUZUMAB [Suspect]
     Active Substance: TRASTUZUMAB
     Dosage: 372 MG EVERY 3 WEEKS
     Route: 042
     Dates: start: 20180626, end: 20181010
  12. TRASTUZUMAB [Suspect]
     Active Substance: TRASTUZUMAB
     Dosage: 384 MG EVERY 3 WEEKS
     Route: 042
     Dates: start: 20180515, end: 20180605
  13. TRASTUZUMAB [Suspect]
     Active Substance: TRASTUZUMAB
     Dosage: 378 MG, 3 WEEK, MOST RECENT DOSE WAS RECEIVED ON 09/JAN/2019.
     Route: 042
     Dates: start: 20181102, end: 20181123
  14. TRASTUZUMAB [Suspect]
     Active Substance: TRASTUZUMAB
     Dosage: 378 MG, EVERY 3 WEEKS
     Route: 042
     Dates: start: 20181102, end: 20181102
  15. TRASTUZUMAB [Suspect]
     Active Substance: TRASTUZUMAB
     Dosage: 378 MG EVERY 3 WEEKS; MOST RECENT DOSE WAS RECEIVED ON 09 JAN 2019
     Route: 042
     Dates: start: 20181123
  16. TRASTUZUMAB [Suspect]
     Active Substance: TRASTUZUMAB
     Dosage: 378 MG, EVERY 3 WEEKS
     Route: 042
     Dates: start: 20181102, end: 20181123
  17. TRASTUZUMAB [Suspect]
     Active Substance: TRASTUZUMAB
     Dosage: 378 MG EVERY 3 WEEKS
     Route: 042
     Dates: start: 20181214, end: 20190109
  18. TRASTUZUMAB [Suspect]
     Active Substance: TRASTUZUMAB
     Dosage: 378 MG EVERY 3 WEEKS
     Route: 042
     Dates: start: 20181214, end: 20190109
  19. TRASTUZUMAB [Suspect]
     Active Substance: TRASTUZUMAB
     Dosage: 378 MG, EVERY 3 WEEKS
     Route: 042
     Dates: start: 20181123, end: 20181123
  20. TRASTUZUMAB [Suspect]
     Active Substance: TRASTUZUMAB
     Dosage: DOSAGE FORM: INFUSION, SOLUTION
     Route: 041
  21. TRASTUZUMAB [Suspect]
     Active Substance: TRASTUZUMAB
     Dosage: 600 MG EVERY 3 WEEKS
     Route: 042
     Dates: start: 20191011, end: 20191011
  22. TRASTUZUMAB [Suspect]
     Active Substance: TRASTUZUMAB
     Dosage: 600 MG, EVERY 3 WEEK
     Route: 042
     Dates: start: 20191011, end: 20191025
  23. TRASTUZUMAB [Suspect]
     Active Substance: TRASTUZUMAB
     Dosage: 1440 MG, EVERY 3 WEEK
     Route: 042
     Dates: start: 20190119, end: 20200129
  24. TRASTUZUMAB [Suspect]
     Active Substance: TRASTUZUMAB
     Indication: HER2 positive breast cancer
     Dosage: 378 MG, EVERY 3 WEEKS; MOST RECENT DOSE WAS RECEIVED ON 09/JAN/2019.
     Route: 042
     Dates: start: 20181123, end: 20181123
  25. TRASTUZUMAB [Suspect]
     Active Substance: TRASTUZUMAB
     Dosage: 378 MG, EVERY 3 WEEKS; LAST DOSE WAS RECEIVED ON 09/JAN/2019.
     Route: 042
     Dates: start: 20181214, end: 20190109
  26. ABRAXANE [Suspect]
     Active Substance: PACLITAXEL
     Indication: HER2 positive breast cancer
     Dosage: 177.17 MG; DOSE ON 08/MAY/2018 DOSE ON 08/MAY/2018MOST RECENT DOSE PRIOR TO THE EVENT: 16/JAN/2019
     Route: 042
     Dates: start: 20180416
  27. ABRAXANE [Suspect]
     Active Substance: PACLITAXEL
     Indication: Breast cancer
     Dosage: 177.17 MG, 1/WEEK; MOST RECENT DOSE PRIOR TO THE EVENT: 08/MAY/2018, 16/JAN/2019,
     Route: 042
     Dates: start: 20180416
  28. ABRAXANE [Suspect]
     Active Substance: PACLITAXEL
     Dosage: 177.17 MG INTRAVENOUSLY (DOSE ON 08/MAY/2018 MOST RECENT DOSE PRIOR TO THE EVENT: 07/DEC/2018)
     Route: 042
     Dates: start: 20180416
  29. CAPECITABINE [Suspect]
     Active Substance: CAPECITABINE
     Indication: HER2 positive breast cancer
     Dosage: 500 MG, FREQUENCY: OTHER MOST RECENT DOSE PRIOR TO THE EVENT: 19/DEC/2019
     Route: 048
     Dates: start: 20191126, end: 20191218
  30. CAPECITABINE [Suspect]
     Active Substance: CAPECITABINE
     Indication: Breast cancer
     Dosage: 500 MG, FREQUENCY: OTHER MOST RECENT DOSE PRIOR TO THE EVENT: 19/DEC/2019
     Route: 048
     Dates: start: 20191126
  31. CAPECITABINE [Suspect]
     Active Substance: CAPECITABINE
     Dosage: 500 MG, OTHER
     Route: 048
     Dates: start: 20191126, end: 20191218
  32. CAPECITABINE [Suspect]
     Active Substance: CAPECITABINE
     Dosage: 500 MG, UNK, OTHER
     Route: 048
     Dates: start: 20191219
  33. CYCLOPHOSPHAMIDE [Suspect]
     Active Substance: CYCLOPHOSPHAMIDE
     Indication: HER2 positive breast cancer
     Dosage: 2.5 MG, EVERY 0.5 WEEK
     Route: 048
  34. CYCLOPHOSPHAMIDE [Suspect]
     Active Substance: CYCLOPHOSPHAMIDE
     Indication: Breast cancer
     Dosage: 50 MG, QD, MOST RECENT DOSE ON 09/MAR/2020
     Route: 048
     Dates: start: 20200219, end: 20200309
  35. CYCLOPHOSPHAMIDE [Suspect]
     Active Substance: CYCLOPHOSPHAMIDE
     Dosage: 50 MG, QD
     Route: 048
     Dates: start: 20200219, end: 20200309
  36. CYCLOPHOSPHAMIDE [Suspect]
     Active Substance: CYCLOPHOSPHAMIDE
     Dosage: 50 MG, QD; MOST RECENT DOSE ON 09/MAR/2020
     Route: 048
     Dates: start: 20200219
  37. CYCLOPHOSPHAMIDE [Suspect]
     Active Substance: CYCLOPHOSPHAMIDE
     Dosage: UNK
  38. METHOTREXATE [Suspect]
     Active Substance: METHOTREXATE
     Indication: HER2 positive breast cancer
     Dosage: 2.5 MG, EVERY 0.5 WEEK, MOST RECENT DOSE ON 09/MAR/2020
     Route: 048
     Dates: start: 20200219, end: 20200309
  39. METHOTREXATE [Suspect]
     Active Substance: METHOTREXATE
     Indication: Breast cancer
     Dosage: 2.5 MG, EVERY 0.5 WEEK, MOST RECENT DOSE ON 09/MAR/2020
     Route: 048
     Dates: start: 20200219
  40. METHOTREXATE [Suspect]
     Active Substance: METHOTREXATE
     Dosage: 2.5 MG, EVERY 0.5 WEEK
     Route: 048
     Dates: start: 20200219, end: 20200309
  41. METHOTREXATE [Suspect]
     Active Substance: METHOTREXATE
     Dosage: UNK
  42. PACLITAXEL [Suspect]
     Active Substance: PACLITAXEL
     Indication: HER2 positive breast cancer
     Dosage: 177.17 MG, DOSE ON 08/MAY/2018 MOST RECENT DOSE PRIOR TO THE EVENT: 16/JAN/2019
     Route: 042
     Dates: start: 20180416
  43. PACLITAXEL [Suspect]
     Active Substance: PACLITAXEL
     Indication: Breast cancer
     Dosage: 177.17 MG, 1/WEEK; MOST RECENT DOSE PRIOR TO THE EVENT: 08/MAY/2018, 16/JAN/2019,
     Route: 042
     Dates: start: 20180416
  44. PACLITAXEL [Suspect]
     Active Substance: PACLITAXEL
     Dosage: 177.17 MG, ONCE A WEEK; MOST RECENT DOSE PRIOR TO THE EVENT: 26/JUN/2018
     Route: 042
     Dates: start: 20180416, end: 20180508
  45. PACLITAXEL [Suspect]
     Active Substance: PACLITAXEL
     Dosage: 177.17 MG, ONCE A WEEK; MOST RECENT DOSE PRIOR TO THE EVENT: 26/JUN/2018
     Route: 042
     Dates: start: 20180416
  46. PACLITAXEL [Suspect]
     Active Substance: PACLITAXEL
     Dosage: 177.17 MG, 1/WEEK
     Route: 042
     Dates: start: 20180522, end: 20180529
  47. PACLITAXEL [Suspect]
     Active Substance: PACLITAXEL
     Dosage: 172.67 MG, 1/WEEK
     Route: 042
     Dates: start: 20180605, end: 20180605
  48. PACLITAXEL [Suspect]
     Active Substance: PACLITAXEL
     Dosage: 171.51 MG, 1/WEEK
     Route: 042
     Dates: start: 20181102, end: 20181123
  49. PACLITAXEL [Suspect]
     Active Substance: PACLITAXEL
     Dosage: 172.67 MG, 1/WEEK
     Route: 042
     Dates: start: 20190102, end: 20190102
  50. PACLITAXEL [Suspect]
     Active Substance: PACLITAXEL
     Dosage: 171.51 MG, 1/WEEK
     Route: 042
     Dates: start: 20181207, end: 20181221
  51. PACLITAXEL [Suspect]
     Active Substance: PACLITAXEL
     Dosage: 177.17 MG, 1/WEEK
     Route: 042
     Dates: start: 20180612, end: 20180619
  52. PACLITAXEL [Suspect]
     Active Substance: PACLITAXEL
     Dosage: 171.51 MG, 1/WEEK
     Route: 042
     Dates: start: 20190109, end: 20190109
  53. PACLITAXEL [Suspect]
     Active Substance: PACLITAXEL
     Dosage: 172.67 MG, 1/WEEK
     Route: 042
     Dates: start: 20180515, end: 20180515
  54. PACLITAXEL [Suspect]
     Active Substance: PACLITAXEL
     Dosage: 170.35 MG, 1/WEEK
     Route: 042
     Dates: start: 20180626, end: 20180718
  55. PACLITAXEL [Suspect]
     Active Substance: PACLITAXEL
     Dosage: 172.67 MG, 1/WEEK
     Route: 042
     Dates: start: 20190116, end: 20190116
  56. NAVELBINE [Suspect]
     Active Substance: VINORELBINE TARTRATE
     Indication: HER2 positive breast cancer
     Dosage: 50 UG; RECENT DOSE: 28/OCT/2019
     Route: 048
     Dates: start: 20191011
  57. NAVELBINE [Suspect]
     Active Substance: VINORELBINE TARTRATE
     Indication: Breast cancer
     Dosage: 50 UG; RECENT DOSE: 28/OCT/2019
     Route: 048
     Dates: start: 20191011
  58. NAVELBINE [Suspect]
     Active Substance: VINORELBINE TARTRATE
     Dosage: 50 UG (RECENT DOSE: 28/OCT/2019)
     Route: 048
     Dates: start: 20191011, end: 20191025
  59. NERATINIB [Suspect]
     Active Substance: NERATINIB
     Indication: HER2 positive breast cancer
     Dosage: 1440 MG, QD
     Route: 048
     Dates: start: 20200108, end: 20200118
  60. NERATINIB [Suspect]
     Active Substance: NERATINIB
     Indication: Breast cancer
     Dosage: 1440 MG, QD; MOST RECENT DOSE ON 18/JAN/2020
     Route: 048
     Dates: start: 20200108
  61. NERATINIB [Suspect]
     Active Substance: NERATINIB
     Dosage: 1440 MG, QD
     Route: 048
     Dates: start: 20200119, end: 20200129
  62. NERATINIB [Suspect]
     Active Substance: NERATINIB
     Dosage: UNK
  63. PACLITAXEL [Suspect]
     Active Substance: PACLITAXEL
     Indication: HER2 positive breast cancer
     Dosage: WEEKLY, RECENT DOSE ON 09/APR/2018
     Route: 042
     Dates: start: 20180328, end: 20180409
  64. PACLITAXEL [Suspect]
     Active Substance: PACLITAXEL
     Indication: Breast cancer
     Dosage: 147.76 MG, WEEKLY, LAST DOSE 09/APR/2018
     Route: 042
     Dates: start: 20180328, end: 20180409
  65. PACLITAXEL [Suspect]
     Active Substance: PACLITAXEL
     Dosage: 177.17 MG, 1/WEEK
     Route: 042
     Dates: start: 20180416, end: 20180508
  66. PACLITAXEL [Suspect]
     Active Substance: PACLITAXEL
     Dosage: 177.17 MG, ON 08/MAY/2018, RECEIVED MOST RECENT DOSE PRIOR TO AE.
     Route: 042
     Dates: start: 20180416
  67. PACLITAXEL [Suspect]
     Active Substance: PACLITAXEL
     Dosage: 177.17 MG, EVERY 1 WEEK
     Route: 042
     Dates: start: 20180416, end: 20180508
  68. PACLITAXEL [Suspect]
     Active Substance: PACLITAXEL
     Dosage: 172.67 MG, WEEKLY
     Route: 042
     Dates: start: 20180515, end: 20180515
  69. PACLITAXEL [Suspect]
     Active Substance: PACLITAXEL
     Dosage: 172.67 MG, EVERY WEEK
     Route: 042
     Dates: start: 20180515
  70. PACLITAXEL [Suspect]
     Active Substance: PACLITAXEL
     Dosage: 147.76 MG, WEEKLY
     Route: 042
     Dates: start: 20180522, end: 20180529
  71. PACLITAXEL [Suspect]
     Active Substance: PACLITAXEL
     Dosage: 177.17 MG, EVERY WEEK
     Route: 042
     Dates: start: 20180522, end: 20180529
  72. PACLITAXEL [Suspect]
     Active Substance: PACLITAXEL
     Dosage: 172.67 MG, EVERY WEEK
     Route: 042
     Dates: start: 20180605, end: 20180605
  73. PACLITAXEL [Suspect]
     Active Substance: PACLITAXEL
     Dosage: 172.67 MG, EVERY 1 WEEK
     Route: 042
     Dates: start: 20180605, end: 20190515
  74. PACLITAXEL [Suspect]
     Active Substance: PACLITAXEL
     Dosage: 172.67 MG, 1/WEEK
     Route: 042
     Dates: start: 20180605, end: 20190515
  75. PACLITAXEL [Suspect]
     Active Substance: PACLITAXEL
     Dosage: 177.17 MG, 1/WEEK
     Route: 042
     Dates: start: 20180612, end: 20180612
  76. PACLITAXEL [Suspect]
     Active Substance: PACLITAXEL
     Dosage: 177.17 MG, EVERY WEEK
     Route: 042
     Dates: start: 20180612, end: 20180619
  77. PACLITAXEL [Suspect]
     Active Substance: PACLITAXEL
     Dosage: 170.35 MG, 1/WEEK
     Route: 042
     Dates: start: 20180626, end: 20180718
  78. PACLITAXEL [Suspect]
     Active Substance: PACLITAXEL
     Dosage: 171.51 MG, 1/WEEK
     Route: 042
     Dates: start: 20181102, end: 20181123
  79. PACLITAXEL [Suspect]
     Active Substance: PACLITAXEL
     Dosage: 177.51 MG, 1/WEEK
     Route: 042
     Dates: start: 20181102, end: 20181123
  80. PACLITAXEL [Suspect]
     Active Substance: PACLITAXEL
     Dosage: 171.51 MG, 1/WEEK
     Route: 042
     Dates: start: 20181207, end: 20181221
  81. PACLITAXEL [Suspect]
     Active Substance: PACLITAXEL
     Dosage: 172.67 MG, WEEKLY
     Route: 042
     Dates: start: 20190102, end: 20190102
  82. PACLITAXEL [Suspect]
     Active Substance: PACLITAXEL
     Dosage: 171.51 MG, WEEKLY
     Route: 042
     Dates: start: 20190109, end: 20190109
  83. PACLITAXEL [Suspect]
     Active Substance: PACLITAXEL
     Dosage: 172.67 MG, 1/WEEK
     Route: 042
     Dates: start: 20190116, end: 20190116
  84. PACLITAXEL [Suspect]
     Active Substance: PACLITAXEL
     Dosage: 172.67 MG, 1/WEEK
     Route: 042
     Dates: start: 20190102, end: 20190515
  85. PACLITAXEL [Suspect]
     Active Substance: PACLITAXEL
     Dosage: 172.67 MG, 1/WEEK
     Route: 042
     Dates: start: 20190116, end: 20190116
  86. PERTUZUMAB [Suspect]
     Active Substance: PERTUZUMAB
     Indication: HER2 positive breast cancer
     Dosage: 840 MG EVERY 3 WEEK; MOST RECENT DOSE PRIOR TO THE EVENT: 14/DEC/2018
     Route: 042
     Dates: start: 20180328, end: 20180328
  87. PERTUZUMAB [Suspect]
     Active Substance: PERTUZUMAB
     Indication: Breast cancer
     Dosage: 840 MG EVERY 3 WEEK; MOST RECENT DOSE PRIOR TO THE EVENT: 14/DEC/2018
     Route: 065
     Dates: start: 20180328, end: 20180328
  88. PERTUZUMAB [Suspect]
     Active Substance: PERTUZUMAB
     Dosage: 840 MG EVERY 3 WEEK; MOST RECENT DOSE PRIOR TO THE EVENT: 28/MAR/2018, 14/DEC/2018
     Route: 042
     Dates: start: 20180328
  89. PERTUZUMAB [Suspect]
     Active Substance: PERTUZUMAB
     Dosage: 840 MG EVERY 3 WEEK; MOST RECENT DOSE PRIOR TO THE EVENT: 28/MAR/2018, 14/DEC/2018
     Route: 042
     Dates: start: 20180328
  90. PERTUZUMAB [Suspect]
     Active Substance: PERTUZUMAB
     Dosage: 840 MG, EVERY 3 WEEKS; MOST RECENT DOSE: 23/APR/2018
     Route: 042
     Dates: start: 20180328, end: 20180328
  91. PERTUZUMAB [Suspect]
     Active Substance: PERTUZUMAB
     Dosage: 840 MG, EVERY 3 WEEKS; MOST RECENT DOSE: 23/APR/2018
     Route: 042
     Dates: start: 20180328
  92. PERTUZUMAB [Suspect]
     Active Substance: PERTUZUMAB
     Dosage: 840 MG EVERY 3 WEEK; MOST RECENT DOSE: 14/DEC/2018
     Route: 042
     Dates: start: 20180328
  93. PERTUZUMAB [Suspect]
     Active Substance: PERTUZUMAB
     Dosage: 420 MG EVERY 3 WEEKS
     Route: 042
     Dates: start: 20180423, end: 20180423
  94. PERTUZUMAB [Suspect]
     Active Substance: PERTUZUMAB
     Dosage: 420 MG EVERY 3 WEEKS
     Route: 042
     Dates: start: 20181214, end: 20190109
  95. PERTUZUMAB [Suspect]
     Active Substance: PERTUZUMAB
     Dosage: 420 MG EVERY 3 WEEKS; MOST RECENT DOSE PRIOR TO THE EVENT: 09/JAN/2019
     Route: 042
     Dates: start: 20181214
  96. PERTUZUMAB [Suspect]
     Active Substance: PERTUZUMAB
     Dosage: SOLUTION FOR INFUSION
  97. TAXOL [Suspect]
     Active Substance: PACLITAXEL
     Indication: HER2 positive breast cancer
     Dosage: 147.76 MG, WEEKLY; RECENT DOSE ON 09/APR/2018
     Route: 042
     Dates: start: 20180328, end: 20180409
  98. TAXOL [Suspect]
     Active Substance: PACLITAXEL
     Indication: Breast cancer
     Dosage: 147.76 MG, WEEKLY; LAST DOSE 09/APR/2018
     Route: 042
     Dates: start: 20180328
  99. ADO-TRASTUZUMAB EMTANSINE [Suspect]
     Active Substance: ADO-TRASTUZUMAB EMTANSINE
     Indication: HER2 positive breast cancer
     Dosage: 230.4 MG; EVERY 3 WEEK; DOSE ON 17/MAY/2019, MOST RECENT DOSE PRIOR TO THE EVENT: 28/JUN/2019
     Route: 042
     Dates: start: 20190131, end: 20190517
  100. ADO-TRASTUZUMAB EMTANSINE [Suspect]
     Active Substance: ADO-TRASTUZUMAB EMTANSINE
     Indication: Breast cancer
     Dosage: 230.4 MG; EVERY 3 WEEK; DOSE ON 17/MAY/2019, MOST RECENT DOSE PRIOR TO THE EVENT: 28/JUN/2019
     Route: 042
     Dates: start: 20190131
  101. ADO-TRASTUZUMAB EMTANSINE [Suspect]
     Active Substance: ADO-TRASTUZUMAB EMTANSINE
     Dosage: 230.4 MG; EVERY 3 WEEK; MOST RECENT DOSE: 28/JUN/2019
     Route: 042
     Dates: start: 20190131
  102. ADO-TRASTUZUMAB EMTANSINE [Suspect]
     Active Substance: ADO-TRASTUZUMAB EMTANSINE
     Dosage: SOLUTION FOR INFUSION
  103. ADO-TRASTUZUMAB EMTANSINE [Suspect]
     Active Substance: ADO-TRASTUZUMAB EMTANSINE
     Dosage: 230.4 MG, EVERY 3 WEEKS (DOSE ON 17/MAY/2019)
     Route: 042
     Dates: start: 20210228
  104. ADO-TRASTUZUMAB EMTANSINE [Suspect]
     Active Substance: ADO-TRASTUZUMAB EMTANSINE
     Dosage: 230.4 MG, EVERY 3 WEEKS (MOST RECENT DOSE PRIOR TO THE EVENT: 11/MAR/2020)
     Route: 042
     Dates: start: 20210228
  105. VINORELBINE [Suspect]
     Active Substance: VINORELBINE TARTRATE
     Indication: HER2 positive breast cancer
     Dosage: 50 MG
     Route: 065
     Dates: start: 20191011
  106. VINORELBINE [Suspect]
     Active Substance: VINORELBINE TARTRATE
     Indication: Breast cancer
     Dosage: 50 MG RECENT DOSE: 28/OCT/2019
     Route: 048
     Dates: start: 20191011
  107. VINORELBINE [Suspect]
     Active Substance: VINORELBINE TARTRATE
     Dosage: 50 MG; OTHER, MOST RECENT DOSE ON 25/OCT/2019
     Route: 048
     Dates: start: 20191011
  108. VINORELBINE [Suspect]
     Active Substance: VINORELBINE TARTRATE
     Dosage: 50 MG, RECENT DOSE: 28/OCT/2019
     Route: 048
     Dates: start: 20191011, end: 20191025
  109. VINORELBINE [Suspect]
     Active Substance: VINORELBINE TARTRATE
     Indication: HER2 positive breast cancer
     Dosage: 50 MG; RECENT DOSE: 28/OCT/2019
     Route: 048
     Dates: start: 20191011, end: 20191025
  110. VINORELBINE TARTRATE [Suspect]
     Active Substance: VINORELBINE TARTRATE
     Indication: HER2 positive breast cancer
     Dosage: 50 MICROGRAM; RECENT DOSE: 28/OCT/2019
     Route: 048
     Dates: start: 20191011
  111. VINORELBINE TARTRATE [Suspect]
     Active Substance: VINORELBINE TARTRATE
     Indication: Breast cancer
     Dosage: 50 MG, RECENT DOSE: 28/OCT/2019
     Route: 048
     Dates: start: 20191011, end: 20191025
  112. VINORELBINE TARTRATE [Suspect]
     Active Substance: VINORELBINE TARTRATE
     Dosage: UNK
  113. DEXPANTHENOL\HYALURONATE SODIUM [Concomitant]
     Active Substance: DEXPANTHENOL\HYALURONATE SODIUM
     Indication: Conjunctivitis
     Dosage: UNK
     Dates: start: 20180615, end: 20180619
  114. DEXPANTHENOL\HYALURONATE SODIUM [Concomitant]
     Active Substance: DEXPANTHENOL\HYALURONATE SODIUM
     Dosage: UNK
     Route: 065
     Dates: start: 20180619
  115. DEXPANTHENOL [Concomitant]
     Active Substance: DEXPANTHENOL
     Indication: Onycholysis
     Dosage: UNK
     Route: 065
     Dates: start: 20180725
  116. DEXPANTHENOL [Concomitant]
     Active Substance: DEXPANTHENOL
     Indication: Conjunctivitis
     Dosage: ONGOING = NOT CHECKED
     Dates: start: 20180619
  117. DEXPANTHENOL [Concomitant]
     Active Substance: DEXPANTHENOL
     Indication: Conjunctivitis
     Dosage: ONGOING = NOT CHECKED
     Dates: start: 20180615, end: 20180725
  118. DEXPANTHENOL [Concomitant]
     Active Substance: DEXPANTHENOL
     Indication: Onycholysis
     Dosage: UNK
     Route: 065
     Dates: start: 20180619
  119. DEXPANTHENOL [Concomitant]
     Active Substance: DEXPANTHENOL
     Dosage: UNK
     Route: 065
     Dates: start: 20180619
  120. DEXPANTHENOL [Concomitant]
     Active Substance: DEXPANTHENOL
     Dosage: UNK
     Route: 065
     Dates: start: 20180725
  121. DEXPANTHENOL [Concomitant]
     Active Substance: DEXPANTHENOL
     Dosage: UNK
     Route: 065
     Dates: start: 20180725
  122. CAL D VITA [Concomitant]
     Indication: Product used for unknown indication
     Dosage: UNK
     Route: 065
     Dates: start: 20190425, end: 20200410
  123. CAL D VITA [Concomitant]
     Dosage: ONGOING = CHECKED
     Route: 065
     Dates: start: 20190425
  124. CAL D VITA [Concomitant]
     Dosage: ONGOING = CHECKED
     Dates: start: 20190425
  125. CAL D VITA [Concomitant]
     Dosage: ONGOING = NOT CHECKED
     Dates: start: 20190425
  126. DEXAMETHASONE [Concomitant]
     Active Substance: DEXAMETHASONE
     Indication: Product used for unknown indication
     Dosage: UNK
     Route: 065
     Dates: start: 20190628, end: 20190830
  127. ENTEROBENE [Concomitant]
     Indication: Product used for unknown indication
     Dosage: UNK
     Route: 065
     Dates: start: 20200108, end: 20200113
  128. ENTEROBENE [Concomitant]
     Dosage: UNK
     Dates: start: 20200108
  129. KYTRIL [Concomitant]
     Active Substance: GRANISETRON HYDROCHLORIDE
     Indication: Product used for unknown indication
     Dosage: ONGOING = NOT CHECKED
     Route: 065
     Dates: start: 20190628, end: 20190830
  130. OCTENISEPT [OCTENIDINE HYDROCHLORIDE;PHENOXYETHANOL] [Concomitant]
     Indication: Onycholysis
     Dosage: UNK
     Dates: start: 20180615, end: 20180725
  131. OCTENISEPT [OCTENIDINE HYDROCHLORIDE;PHENOXYETHANOL] [Concomitant]
     Dosage: UNK
     Route: 065
     Dates: start: 20180725
  132. PANTOPRAZOLE SODIUM [Concomitant]
     Active Substance: PANTOPRAZOLE SODIUM
     Indication: Product used for unknown indication
     Dosage: ONGOING = NOT CHECKED
     Route: 065
     Dates: start: 20191011, end: 20200410
  133. PANTOPRAZOLE SODIUM [Concomitant]
     Active Substance: PANTOPRAZOLE SODIUM
     Dosage: ONGOING = CHECKED
     Route: 065
     Dates: start: 20191011, end: 20200410
  134. PANTOPRAZOLE SODIUM [Concomitant]
     Active Substance: PANTOPRAZOLE SODIUM
     Dosage: ONGOING = CHECKED
     Route: 065
     Dates: start: 20191011
  135. XGEVA [Concomitant]
     Active Substance: DENOSUMAB
     Indication: Product used for unknown indication
     Dosage: ONGOING = NOT CHECKED
     Route: 065
     Dates: start: 20191219, end: 20200410
  136. XGEVA [Concomitant]
     Active Substance: DENOSUMAB
     Dosage: UNK
     Dates: start: 20191219
  137. METAMIZOLE SODIUM [Concomitant]
     Active Substance: METAMIZOLE SODIUM
     Indication: Product used for unknown indication
     Dosage: UNK
     Route: 065
     Dates: start: 20200224, end: 20200410
  138. HYDROMORPHONE HYDROCHLORIDE [Concomitant]
     Active Substance: HYDROMORPHONE HYDROCHLORIDE
     Indication: Product used for unknown indication
     Dosage: ONGOING = NOT CHECKED, UNK
     Route: 065
     Dates: start: 20200228, end: 20200410
  139. HYDROMORPHONE HYDROCHLORIDE [Concomitant]
     Active Substance: HYDROMORPHONE HYDROCHLORIDE
     Dosage: UNK
     Route: 065
     Dates: start: 20200228, end: 20200410
  140. HYDROMORPHONE HYDROCHLORIDE [Concomitant]
     Active Substance: HYDROMORPHONE HYDROCHLORIDE
     Dosage: ONGOING = NOT CHECKED, UNK
     Route: 065
     Dates: start: 20200228, end: 20200311
  141. HYDROMORPHONE HYDROCHLORIDE [Concomitant]
     Active Substance: HYDROMORPHONE HYDROCHLORIDE
     Dosage: UNK
     Route: 065
     Dates: start: 20200228, end: 20200311
  142. HYDROMORPHONE HYDROCHLORIDE [Concomitant]
     Active Substance: HYDROMORPHONE HYDROCHLORIDE
     Dosage: ONGOING = NOT CHECKED, UNK
     Route: 065
     Dates: start: 20200311, end: 20200410
  143. HYDROMORPHONE HYDROCHLORIDE [Concomitant]
     Active Substance: HYDROMORPHONE HYDROCHLORIDE
     Dosage: UNK
     Route: 065
     Dates: start: 20200311, end: 20200410
  144. OCTENISEPT GEL [Concomitant]
     Indication: Onycholysis
     Dosage: ONGOING = NOT CHECKED
     Dates: start: 20180715
  145. ZOFRAN [Concomitant]
     Active Substance: ONDANSETRON HYDROCHLORIDE
     Dosage: ONGOING = NOT CHECKED
     Dates: start: 20200309, end: 20200410
  146. ZOFRAN [Concomitant]
     Active Substance: ONDANSETRON HYDROCHLORIDE
     Dosage: UNK
  147. HYDROMORPHONE HYDROCHLORIDE [Concomitant]
     Active Substance: HYDROMORPHONE HYDROCHLORIDE
  148. PANTOPRAZOLE SODIUM [Concomitant]
     Active Substance: PANTOPRAZOLE SODIUM
     Dosage: ONGOING = CHECKED
     Dates: start: 20191011
  149. OCTENIDINE HYDROCHLORIDE [Concomitant]
     Active Substance: OCTENIDINE HYDROCHLORIDE

REACTIONS (13)
  - Tumour pain [Recovered/Resolved]
  - Breast cancer metastatic [Recovering/Resolving]
  - Febrile neutropenia [Recovered/Resolved]
  - Dyspnoea [Recovered/Resolved]
  - Pain of skin [Recovered/Resolved]
  - Skin lesion [Recovering/Resolving]
  - C-reactive protein increased [Recovered/Resolved]
  - Stomatitis [Recovered/Resolved]
  - Diarrhoea [Recovered/Resolved]
  - Intentional product use issue [Unknown]
  - Overdose [Unknown]
  - Off label use [Unknown]
  - Underdose [Unknown]

NARRATIVE: CASE EVENT DATE: 20190920
